FAERS Safety Report 7645468-2 (Version None)
Quarter: 2011Q3

REPORT INFORMATION
  Report Type: 
  Country: None (occurrence: None)
  Receive Date: 20110729
  Receipt Date: 20110719
  Transmission Date: 20111222
  Serious: Yes (Death, Hospitalization)
  Sender: FDA-Public Use
  Company Number: CA-ELI_LILLY_AND_COMPANY-CA201107004951

PATIENT
  Sex: Male

DRUGS (16)
  1. PAXIL [Concomitant]
  2. ZYPREXA [Suspect]
     Dosage: 50 MG, EACH EVENING
  3. ZYPREXA [Suspect]
     Dosage: 20 MG, QD
  4. ZYPREXA [Suspect]
     Dosage: 30 MG, QD
  5. ZYPREXA ZYDIS [Suspect]
     Indication: BIPOLAR DISORDER
     Dosage: 60 MG, QD
  6. PREVACID [Concomitant]
  7. XENICAL [Concomitant]
  8. LIPITOR [Concomitant]
  9. ZYPREXA [Suspect]
     Indication: BIPOLAR DISORDER
     Dosage: 5 MG, EACH EVENING
     Dates: start: 20051220
  10. ZYPREXA [Suspect]
     Dosage: 10 MG, QD
  11. PERPHENAZINE [Concomitant]
  12. DIVALPROEX SODIUM [Concomitant]
  13. ZYPREXA [Suspect]
     Dosage: 40 MG, QD
  14. ZYPREXA [Suspect]
     Dosage: 45 MG, QD
  15. LOMOTIL [Concomitant]
  16. ZYPREXA [Suspect]
     Dosage: 15 MG, QD

REACTIONS (4)
  - TYPE 2 DIABETES MELLITUS [None]
  - OVERDOSE [None]
  - DEATH [None]
  - CONVULSION [None]
